FAERS Safety Report 7596630-9 (Version None)
Quarter: 2011Q3

REPORT INFORMATION
  Report Type: 
  Country: None (occurrence: None)
  Receive Date: 20110708
  Receipt Date: 20110627
  Transmission Date: 20111222
  Serious: Yes (Hospitalization)
  Sender: FDA-Public Use
  Company Number: CA-JNJFOC-20110412537

PATIENT
  Age: 45 Year
  Sex: Male
  Weight: 81.19 kg

DRUGS (4)
  1. MINOXIDIL [Suspect]
     Route: 061
  2. MINOXIDIL [Suspect]
     Indication: ALOPECIA
     Route: 061
     Dates: start: 20020101, end: 20110425
  3. ZOPICLONE [Concomitant]
     Indication: NERVOUSNESS
     Route: 065
     Dates: start: 20110125
  4. ZOPICLONE [Concomitant]
     Indication: INSOMNIA
     Route: 065
     Dates: start: 20110125

REACTIONS (8)
  - ACTIVITIES OF DAILY LIVING IMPAIRED [None]
  - OVERDOSE [None]
  - NEURODERMATITIS [None]
  - FOLLICULITIS [None]
  - NERVOUS SYSTEM DISORDER [None]
  - SCAR [None]
  - HYPERTRICHOSIS [None]
  - SUBCUTANEOUS ABSCESS [None]
